FAERS Safety Report 9499359 (Version 3)
Quarter: 2014Q1

REPORT INFORMATION
  Report Type: Spontaneous
  Country: US (occurrence: US)
  Receive Date: 20130905
  Receipt Date: 20140130
  Transmission Date: 20141002
  Serious: Yes (Other)
  Sender: FDA-Public Use
  Company Number: US-JNJFOC-20130813977

PATIENT
  Age: 86 Year
  Sex: Male

DRUGS (3)
  1. PEPCID COMPLETE BERRY FLAVORED CHEWABLE TABLETS [Suspect]
     Indication: DYSPEPSIA
     Dosage: 1 TABLET TAKEN FOR 2 NIGHTS
     Route: 048
  2. PEPCID COMPLETE BERRY FLAVORED CHEWABLE TABLETS [Suspect]
     Indication: DYSPEPSIA
     Dosage: ? TABLET TAKEN FOR ONE NIGHT
     Route: 048
  3. NEXIUM [Concomitant]
     Indication: GASTROOESOPHAGEAL REFLUX DISEASE
     Route: 065

REACTIONS (4)
  - Loss of consciousness [Recovered/Resolved]
  - Expired drug administered [Unknown]
  - Coordination abnormal [Recovered/Resolved]
  - Dizziness [Recovered/Resolved]
